FAERS Safety Report 26055799 (Version 1)
Quarter: 2025Q4

REPORT INFORMATION
  Report Type: Spontaneous
  Country: US (occurrence: US)
  Receive Date: 20251117
  Receipt Date: 20251117
  Transmission Date: 20260118
  Serious: No
  Sender: SANOFI AVENTIS
  Company Number: US-SA-2025SA337594

PATIENT
  Age: 4 Year
  Sex: Male

DRUGS (4)
  1. DUPIXENT [Suspect]
     Active Substance: DUPILUMAB
     Indication: Dermatitis atopic
     Dosage: 300 MG, Q4W
     Route: 058
  2. VITAMINS [Concomitant]
     Active Substance: VITAMINS
  3. ZYRTEC [Concomitant]
     Active Substance: CETIRIZINE HYDROCHLORIDE
  4. DESONIDE [Concomitant]
     Active Substance: DESONIDE

REACTIONS (14)
  - Dermatitis atopic [Unknown]
  - Rash [Unknown]
  - Dry skin [Unknown]
  - Inappropriate schedule of product administration [Unknown]
  - Erythema [Recovered/Resolved]
  - Rhinorrhoea [Recovered/Resolved]
  - Pruritus [Recovering/Resolving]
  - Skin exfoliation [Unknown]
  - Conjunctivitis [Unknown]
  - Foreign body in gastrointestinal tract [Not Recovered/Not Resolved]
  - Abdominal pain upper [Not Recovered/Not Resolved]
  - Faeces discoloured [Not Recovered/Not Resolved]
  - Skin infection [Recovering/Resolving]
  - Injection site swelling [Recovered/Resolved]

NARRATIVE: CASE EVENT DATE: 20240101
